FAERS Safety Report 4277859-4 (Version None)
Quarter: 2004Q1

REPORT INFORMATION
  Report Type: 
  Country: None (occurrence: None)
  Receive Date: 20040121
  Receipt Date: 20040108
  Transmission Date: 20041129
  Serious: Yes (Hospitalization, Other)
  Sender: FDA-Public Use
  Company Number: 2003126081

PATIENT
  Age: 13 Month
  Sex: Female
  Weight: 7.7 kg

DRUGS (4)
  1. UNASYN [Suspect]
     Indication: BRONCHITIS
     Dosage: 900 MG (TID), INTRAVENOUS
     Route: 042
     Dates: start: 20031128, end: 20031129
  2. UNASYN [Suspect]
     Indication: NASOPHARYNGITIS
     Dosage: 900 MG (TID), INTRAVENOUS
     Route: 042
     Dates: start: 20031128, end: 20031129
  3. INFLUENZA VACCINE (INFLUENZA VACCINE) [Concomitant]
  4. AMOXICILLIN [Concomitant]

REACTIONS (8)
  - BLOOD CREATINE PHOSPHOKINASE INCREASED [None]
  - BLOOD PRESSURE INCREASED [None]
  - BODY TEMPERATURE INCREASED [None]
  - FEBRILE CONVULSION [None]
  - HEPATITIS [None]
  - OXYGEN SATURATION DECREASED [None]
  - RESPIRATORY DISORDER [None]
  - SHOCK [None]
